FAERS Safety Report 8784937 (Version 1)
Quarter: 2012Q4

REPORT INFORMATION
  Report Type: 
  Country: JP (occurrence: JP)
  Receive Date: 20120914
  Receipt Date: 20120914
  Transmission Date: 20130627
  Serious: Yes (Other)
  Sender: FDA-Public Use
  Company Number: JP-009507513-1206USA04669

PATIENT

DRUGS (9)
  1. ZETIA [Suspect]
     Indication: HYPERCHOLESTEROLAEMIA
     Dosage: 10 mg, qd
     Route: 048
     Dates: start: 20120616, end: 20120620
  2. ZETIA [Suspect]
     Indication: LIPIDS ABNORMAL
  3. MICAMLO [Concomitant]
     Indication: HYPERTENSION
     Dosage: 1 DF, qd
     Route: 048
     Dates: start: 20090909
  4. ATORVASTATIN [Concomitant]
     Indication: HYPERCHOLESTEROLAEMIA
     Dosage: 10 mg, qd
     Route: 048
     Dates: start: 20090909
  5. METGLUCO [Concomitant]
     Indication: DIABETES MELLITUS
     Dosage: 25 mg, qid
     Route: 048
     Dates: start: 20090909
  6. OPAPROSMON [Concomitant]
     Indication: SPINAL COLUMN STENOSIS
     Dosage: 5 ?g, tid
     Route: 048
     Dates: start: 20090909
  7. MECOBALAMIN [Concomitant]
     Indication: NEUROPATHY PERIPHERAL
     Dosage: 5 ?g, tid
     Dates: start: 20090909
  8. OMEPRAZON [Concomitant]
     Indication: GASTROOESOPHAGEAL REFLUX DISEASE
     Dosage: UNK
     Route: 048
     Dates: start: 20090909
  9. BONOTEO [Concomitant]
     Indication: OSTEOPOROSIS
     Dosage: 50 mg, qm
     Route: 048
     Dates: start: 20090909

REACTIONS (2)
  - Erythema [Recovered/Resolved]
  - Rash [Recovered/Resolved]
